FAERS Safety Report 16711860 (Version 1)
Quarter: 2019Q3

REPORT INFORMATION
  Report Type: Report from Study
  Country: US (occurrence: US)
  Receive Date: 20190816
  Receipt Date: 20190816
  Transmission Date: 20191004
  Serious: Yes (Hospitalization)
  Sender: FDA-Public Use
  Company Number: US-EXELIXIS-XL18417010615

PATIENT
  Age: 46 Year
  Sex: Male
  Weight: 85.9 kg

DRUGS (10)
  1. XL184 [Suspect]
     Active Substance: CABOZANTINIB
     Dosage: 40 MG, QD POST-PROGRESSION, CYCLE (21 DAYS) 1-4
     Route: 048
  2. IPILIMUMAB [Suspect]
     Active Substance: IPILIMUMAB
     Indication: TRANSITIONAL CELL CARCINOMA METASTATIC
     Dosage: 1MG/KG IV OVER 90 MIN, DAY 1, CYCLE (21 DAYS) 1-4
     Dates: start: 20170621
  3. NIVOLUMAB [Suspect]
     Active Substance: NIVOLUMAB
     Dosage: 3 MG/KG IV OVER 60 MIN DAYS 1 AND 15, CYCLE (28 DAYS) 5-25
  4. IPILIMUMAB [Suspect]
     Active Substance: IPILIMUMAB
     Dosage: 94 MG, UNK
     Dates: start: 20170621, end: 20170821
  5. XL184 [Suspect]
     Active Substance: CABOZANTINIB
     Indication: TRANSITIONAL CELL CARCINOMA METASTATIC
     Dosage: 40 MG, QD, CYCLE (21 DAYS) 1-4
     Route: 048
     Dates: start: 20170621
  6. NIVOLUMAB [Suspect]
     Active Substance: NIVOLUMAB
     Dosage: 3 MG/KG IV OVER 60 MIN DAY 1 POST-PROGRESSION, CYCLE (21 DAYS)1-4
  7. NIVOLUMAB [Suspect]
     Active Substance: NIVOLUMAB
     Indication: TRANSITIONAL CELL CARCINOMA METASTATIC
     Dosage: 3 MG/KG IV OVER 60 MIN DAY 1, CYCLE (21 DAYS) 1-4
     Dates: start: 20170621
  8. IPILIMUMAB [Suspect]
     Active Substance: IPILIMUMAB
     Dosage: 1MG/KG IV OVER 90 MIN, DAY 1 POST PROGRESSION, CYCLE (21 DAYS) 1-4
  9. XL184 [Suspect]
     Active Substance: CABOZANTINIB
     Dosage: 40 MG, QD, CYCLE (28 DAYS) 5-26 PLUS
     Route: 048
  10. NIVOLUMAB [Suspect]
     Active Substance: NIVOLUMAB
     Dosage: 270 MG, UNK
     Route: 042
     Dates: start: 20170621, end: 20170821

REACTIONS (2)
  - Colitis [Recovered/Resolved]
  - Diarrhoea [Unknown]

NARRATIVE: CASE EVENT DATE: 20170823
